FAERS Safety Report 9540818 (Version 1)
Quarter: 2013Q3

REPORT INFORMATION
  Report Type: Spontaneous
  Country: US (occurrence: US)
  Receive Date: 20130920
  Receipt Date: 20130920
  Transmission Date: 20140515
  Serious: Yes (Other)
  Sender: FDA-Public Use
  Company Number: US-BAYER-2013-110622

PATIENT
  Age: 46 Year
  Sex: Male

DRUGS (2)
  1. CALCIUM CARBONATE [Suspect]
     Indication: DYSPEPSIA
     Dosage: 120 TABLETS WITHIN 24 HRS
  2. CALCIUM CARBONATE [Suspect]
     Indication: ABDOMINAL PAIN UPPER

REACTIONS (7)
  - Renal failure acute [Recovered/Resolved]
  - Milk-alkali syndrome [Recovered/Resolved]
  - Hypercalcaemia [Recovered/Resolved]
  - Overdose [None]
  - Dehydration [None]
  - Electrocardiogram delta waves abnormal [None]
  - Electrocardiogram QT shortened [None]
